FAERS Safety Report 6734280-4 (Version None)
Quarter: 2010Q2

REPORT INFORMATION
  Report Type: 
  Country: None (occurrence: None)
  Receive Date: 20100520
  Receipt Date: 20100511
  Transmission Date: 20101027
  Serious: Yes (Death, Other)
  Sender: FDA-Public Use
  Company Number: US-BAXTER-2010BH006889

PATIENT
  Age: 60 Year
  Sex: Female

DRUGS (3)
  1. DIANEAL [Suspect]
     Indication: PERITONEAL DIALYSIS
     Route: 033
     Dates: start: 20060101, end: 20100301
  2. DIANEAL [Suspect]
     Route: 033
     Dates: start: 20060101, end: 20100301
  3. EXTRANEAL [Suspect]
     Indication: PERITONEAL DIALYSIS
     Route: 033
     Dates: start: 20060101

REACTIONS (6)
  - ATRIAL FIBRILLATION [None]
  - CARDIAC DISORDER [None]
  - DISEASE COMPLICATION [None]
  - GENERAL PHYSICAL HEALTH DETERIORATION [None]
  - INFECTION [None]
  - MYOCARDIAL INFARCTION [None]
